FAERS Safety Report 9165404 (Version 1)
Quarter: 2013Q1

REPORT INFORMATION
  Report Type: Spontaneous
  Country: AU (occurrence: AU)
  Receive Date: 20130315
  Receipt Date: 20130315
  Transmission Date: 20140127
  Serious: Yes (Other)
  Sender: FDA-Public Use
  Company Number: PHHY2013AU024923

PATIENT
  Age: 54 Year
  Sex: Female

DRUGS (6)
  1. SANDOSTATIN [Suspect]
     Indication: PANCREATIC NEUROENDOCRINE TUMOUR METASTATIC
     Dosage: 500 UG, TID
     Dates: start: 20130118
  2. TEMOZOLOMIDE [Concomitant]
     Dosage: 300 MG, UNK
     Dates: start: 20130211
  3. CAPECITABINE [Concomitant]
  4. HYDROCORTISONE [Concomitant]
     Dosage: 12.5 MG, QD
     Dates: start: 20130308
  5. FLUOROURACIL [Concomitant]
     Dosage: 1200 MG, EVERY 7 DAYS
     Dates: start: 20130301
  6. XELODA [Concomitant]
     Dosage: 1 G, BID
     Dates: start: 20130201, end: 20130215

REACTIONS (3)
  - Metastases to liver [Unknown]
  - Hepatic mass [Unknown]
  - Therapeutic response decreased [Unknown]
